FAERS Safety Report 8664443 (Version 3)
Quarter: 2014Q1

REPORT INFORMATION
  Report Type: Spontaneous
  Country: US (occurrence: US)
  Receive Date: 20120713
  Receipt Date: 20140128
  Transmission Date: 20141002
  Serious: Yes (Other)
  Sender: FDA-Public Use
  Company Number: CHPA2012US014661

PATIENT
  Age: 62 Year
  Sex: Female

DRUGS (3)
  1. MAALOX UNKNOWN [Suspect]
     Indication: ABDOMINAL DISCOMFORT
     Dosage: UNK, PRN
     Route: 048
     Dates: start: 1996, end: 2006
  2. MAALOX UNKNOWN [Suspect]
     Indication: ULCER
  3. CARDIAC THERAPY [Concomitant]
     Dosage: UNK, UNK

REACTIONS (9)
  - Spinal fracture [Unknown]
  - Ulcer haemorrhage [Unknown]
  - Road traffic accident [Recovered/Resolved]
  - Activities of daily living impaired [Unknown]
  - Ulcer [Unknown]
  - Stress [Unknown]
  - Back pain [Unknown]
  - Pain [Not Recovered/Not Resolved]
  - Therapeutic response unexpected [Unknown]
